FAERS Safety Report 9846169 (Version 1)
Quarter: 2013Q4

REPORT INFORMATION
  Report Type: Spontaneous
  Country: US (occurrence: None)
  Receive Date: 20131223
  Receipt Date: 20131223
  Transmission Date: 20140711
  Serious: Yes (Death)
  Sender: FDA-Public Use
  Company Number: CABO-13003651

PATIENT
  Age: 86 Year
  Sex: Male

DRUGS (8)
  1. COMETRIQ (CABOZANTINIB) CAPSULE [Suspect]
     Indication: PROSTATE CANCER
     Route: 048
  2. CASODEX (BICALUTAMIDE) [Concomitant]
  3. BUSERELIN (BUSERELIN ACETATE) [Concomitant]
  4. ESTRAMUSTIN (ESTRAMUSTINE PHOSPAHATE SODIUM) [Concomitant]
  5. TAXOTERE (DOCETAXEL) [Concomitant]
  6. ZYTIGA (ABIRATERONE ACETATE) [Concomitant]
  7. ENZALUTAMIDE (ENZALUTAMIDE) [Concomitant]
  8. DOCETAXEL (DOCETAXEL) [Concomitant]

REACTIONS (2)
  - Malignant neoplasm progression [None]
  - Off label use [None]
